FAERS Safety Report 4997133-8 (Version None)
Quarter: 2006Q2

REPORT INFORMATION
  Report Type: 
  Country: None (occurrence: None)
  Receive Date: 20060505
  Receipt Date: 20060505
  Transmission Date: 20061013
  Serious: No
  Sender: FDA-Public Use
  Company Number: None

PATIENT
  Age: 83 Year
  Sex: Female
  Weight: 71.2147 kg

DRUGS (1)
  1. QVAR 40 [Suspect]
     Indication: ASTHMA
     Dosage: INHALE TWO -2- PUFS TWICE A DAY INHAL
     Route: 055
     Dates: start: 20060426, end: 20060504

REACTIONS (1)
  - PHARMACEUTICAL PRODUCT COMPLAINT [None]
